FAERS Safety Report 18072290 (Version 1)
Quarter: 2020Q3

REPORT INFORMATION
  Report Type: Spontaneous
  Country: US (occurrence: US)
  Receive Date: 20200726
  Receipt Date: 20200726
  Transmission Date: 20201103
  Serious: Yes (Disabling)
  Sender: FDA-Public Use
  Company Number: None

PATIENT
  Age: 34 Year
  Sex: Female
  Weight: 59.85 kg

DRUGS (2)
  1. ZYRTEC [Concomitant]
     Active Substance: CETIRIZINE HYDROCHLORIDE
  2. NP THYROID [Suspect]
     Active Substance: LEVOTHYROXINE\LIOTHYRONINE
     Indication: THYROID FUNCTION TEST ABNORMAL
     Dosage: ?          QUANTITY:30 TABLET(S);?
     Route: 048
     Dates: start: 20191004, end: 20200113

REACTIONS (5)
  - Recalled product administered [None]
  - Therapy interrupted [None]
  - Thyroid hormones increased [None]
  - Urticaria [None]
  - Pruritus [None]

NARRATIVE: CASE EVENT DATE: 20191012
